FAERS Safety Report 8044422 (Version 5)
Quarter: 2014Q1

REPORT INFORMATION
  Report Type: Spontaneous
  Country: US (occurrence: US)
  Receive Date: 20110719
  Receipt Date: 20140124
  Transmission Date: 20141002
  Serious: Yes (Hospitalization, Disabling)
  Sender: FDA-Public Use
  Company Number: US-ASTRAZENECA-2011SE41509

PATIENT
  Age: 638 Month
  Sex: Female
  Weight: 74.8 kg

DRUGS (19)
  1. NEXIUM [Suspect]
     Indication: GASTROOESOPHAGEAL REFLUX DISEASE
     Route: 048
     Dates: start: 1994
  2. NEXIUM [Suspect]
     Indication: GASTROOESOPHAGEAL REFLUX DISEASE
     Route: 048
     Dates: start: 2001
  3. NEXIUM [Suspect]
     Indication: GASTROOESOPHAGEAL REFLUX DISEASE
     Route: 048
     Dates: start: 20100722
  4. ROLAIDS [Concomitant]
     Dosage: AS NEEDED
  5. TUMS [Concomitant]
     Dosage: AS NEEDED
  6. MORPHINE [Concomitant]
  7. NORCO [Concomitant]
  8. BUPIVACAINE [Concomitant]
  9. OXYCONTIN [Concomitant]
  10. NORVASC [Concomitant]
  11. VESICARE [Concomitant]
  12. PROZAC [Concomitant]
  13. TRAZADONE [Concomitant]
  14. KLONOPIN [Concomitant]
  15. LISINOPRIL [Concomitant]
  16. DIAZEPAM [Concomitant]
     Dates: start: 20100209
  17. CLONAZEPAM [Concomitant]
     Dates: start: 20100209
  18. FLUOXETINE [Concomitant]
     Dates: start: 20100618
  19. CELEBREX [Concomitant]
     Dates: start: 20081230

REACTIONS (10)
  - Intervertebral disc degeneration [Unknown]
  - Cervical spinal stenosis [Unknown]
  - Spinal osteoarthritis [Unknown]
  - Spondylolisthesis [Unknown]
  - Osteoporosis [Unknown]
  - Multiple fractures [Unknown]
  - Tibia fracture [Unknown]
  - Fibula fracture [Unknown]
  - Road traffic accident [Unknown]
  - Intervertebral disc protrusion [Unknown]
